FAERS Safety Report 17015357 (Version 2)
Quarter: 2019Q4

REPORT INFORMATION
  Report Type: Spontaneous
  Country: NL (occurrence: NL)
  Receive Date: 20191111
  Receipt Date: 20191130
  Transmission Date: 20200122
  Serious: Yes (Hospitalization)
  Sender: FDA-Public Use
  Company Number: NL-TEVA-2019-NL-1135781

PATIENT
  Age: 52 Year
  Sex: Female
  Weight: 102.5 kg

DRUGS (5)
  1. MELOXICAM TABLET 7,5MG [Concomitant]
     Dosage: 1 TABLET A DAY, 7 MG
  2. CLOMIPRAMINE TABLET 25MG [Concomitant]
     Dosage: 1 TIME A DAY , 25 MG
  3. AMOXICILLINE TABLET, 500 MG (MILLIGRAM) [Suspect]
     Active Substance: AMOXICILLIN
     Indication: ENDODONTIC PROCEDURE
     Dosage: 3 TIMES A DAY 1 TABLET, 500 MG
     Dates: start: 20191005
  4. AMOXICILLINE TABLET, 500 MG (MILLIGRAM) [Suspect]
     Active Substance: AMOXICILLIN
     Indication: PROPHYLAXIS
  5. OMEPRAZOL CAPSULE 40MG [Concomitant]
     Dosage: 1 CAPSULE 1 TIME PER DAY, 40 MG

REACTIONS (5)
  - Rash pruritic [Recovering/Resolving]
  - Rash papular [Recovering/Resolving]
  - Toxic skin eruption [Recovering/Resolving]
  - Erythema [Recovering/Resolving]
  - Urticaria [Recovering/Resolving]

NARRATIVE: CASE EVENT DATE: 20191010
